FAERS Safety Report 8999359 (Version 1)
Quarter: 2013Q1

REPORT INFORMATION
  Report Type: Spontaneous
  Country: US (occurrence: US)
  Receive Date: 20130103
  Receipt Date: 20130103
  Transmission Date: 20140127
  Serious: Yes (Death)
  Sender: FDA-Public Use
  Company Number: US-BAXTER-2012BAX029039

PATIENT
  Sex: Male

DRUGS (1)
  1. DIANEAL LOW CALCIUM [Suspect]
     Indication: PERITONEAL DIALYSIS
     Route: 033
     Dates: end: 20121130

REACTIONS (4)
  - Myocardial infarction [Fatal]
  - Chronic obstructive pulmonary disease [Fatal]
  - Peripheral vascular disorder [Fatal]
  - Hypertension [Fatal]
